FAERS Safety Report 15480691 (Version 6)
Quarter: 2020Q2

REPORT INFORMATION
  Report Type: Spontaneous
  Country: PT (occurrence: PT)
  Receive Date: 20181010
  Receipt Date: 20200622
  Transmission Date: 20200713
  Serious: Yes (Other)
  Sender: FDA-Public Use
  Company Number: PHHY2018PT118268

PATIENT
  Age: 65 Year
  Sex: Female

DRUGS (4)
  1. SIMVASTATIN. [Suspect]
     Active Substance: SIMVASTATIN
     Indication: HYPERLIPIDAEMIA
  2. SIMVASTATIN. [Suspect]
     Active Substance: SIMVASTATIN
     Indication: HYPERCHOLESTEROLAEMIA
     Dosage: 20 MG, QD (TABLET)
     Route: 065
  3. ROSUVASTATIN. [Suspect]
     Active Substance: ROSUVASTATIN
     Indication: HYPERCHOLESTEROLAEMIA
     Dosage: 10 MG, QD
     Route: 048
  4. ROSUVASTATIN. [Suspect]
     Active Substance: ROSUVASTATIN
     Indication: DYSLIPIDAEMIA

REACTIONS (8)
  - Lichenoid keratosis [Recovered/Resolved]
  - Dermatitis bullous [Recovered/Resolved]
  - Epidermal necrosis [Recovered/Resolved]
  - Drug eruption [Recovering/Resolving]
  - Pruritus [Recovered/Resolved]
  - Skin lesion [Recovered/Resolved]
  - Parakeratosis [Recovered/Resolved]
  - Dermatitis psoriasiform [Recovered/Resolved]
